FAERS Safety Report 15796492 (Version 1)
Quarter: 2019Q1

REPORT INFORMATION
  Report Type: Spontaneous
  Country: US (occurrence: US)
  Receive Date: 20190108
  Receipt Date: 20190108
  Transmission Date: 20190417
  Serious: Yes (Death, Other)
  Sender: FDA-Public Use
  Company Number: US-CIPLA LTD.-2019US00004

PATIENT

DRUGS (14)
  1. PACLITAXEL. [Suspect]
     Active Substance: PACLITAXEL
     Indication: ANOGENITAL WARTS
     Dosage: UNK, 2 CYCLES
     Route: 065
  2. CARBOPLATIN. [Suspect]
     Active Substance: CARBOPLATIN
     Indication: ANOGENITAL WARTS
     Dosage: UNK, 2 CYCLES
     Route: 065
  3. FLUOROURACIL. [Suspect]
     Active Substance: FLUOROURACIL
     Indication: SQUAMOUS CELL CARCINOMA
     Dosage: UNK, 15 CYCLES
     Route: 065
  4. IRINOTECAN [Suspect]
     Active Substance: IRINOTECAN
     Indication: ANOGENITAL WARTS
     Dosage: UNK, 15 CYCLES
     Route: 065
  5. FLUOROURACIL. [Suspect]
     Active Substance: FLUOROURACIL
     Indication: ANOGENITAL WARTS
     Dosage: UNK, 6 CYCLES
  6. CISPLATIN. [Suspect]
     Active Substance: CISPLATIN
     Indication: ANOGENITAL WARTS
     Dosage: UNK, 6 CYCLES
     Route: 065
  7. CETUXIMAB. [Suspect]
     Active Substance: CETUXIMAB
     Indication: SQUAMOUS CELL CARCINOMA
  8. IRINOTECAN [Suspect]
     Active Substance: IRINOTECAN
     Indication: SQUAMOUS CELL CARCINOMA
  9. CARBOPLATIN. [Suspect]
     Active Substance: CARBOPLATIN
     Indication: SQUAMOUS CELL CARCINOMA
  10. PACLITAXEL. [Suspect]
     Active Substance: PACLITAXEL
     Indication: SQUAMOUS CELL CARCINOMA
  11. CISPLATIN. [Suspect]
     Active Substance: CISPLATIN
     Indication: SQUAMOUS CELL CARCINOMA
  12. LEUCOVORIN                         /00566701/ [Suspect]
     Active Substance: LEUCOVORIN
     Indication: ANOGENITAL WARTS
     Dosage: UNK, 15 CYCLES
     Route: 065
  13. LEUCOVORIN                         /00566701/ [Suspect]
     Active Substance: LEUCOVORIN
     Indication: SQUAMOUS CELL CARCINOMA
  14. CETUXIMAB. [Suspect]
     Active Substance: CETUXIMAB
     Indication: ANOGENITAL WARTS
     Dosage: UNK, 15 CYCLES
     Route: 065

REACTIONS (2)
  - Death [Fatal]
  - Malignant neoplasm progression [Unknown]
